FAERS Safety Report 4429439-5 (Version None)
Quarter: 2004Q3

REPORT INFORMATION
  Report Type: 
  Country: None (occurrence: None)
  Receive Date: 20040816
  Receipt Date: 20040806
  Transmission Date: 20050211
  Serious: Yes (Death)
  Sender: FDA-Public Use
  Company Number: 2004213550GB

PATIENT
  Age: 9 Year
  Sex: Male
  Weight: 41 kg

DRUGS (1)
  1. GENOTROPIN [Suspect]
     Indication: BODY HEIGHT BELOW NORMAL
     Dosage: 21 IU/WEEKLY, 7 INJECTIONS
     Dates: start: 19950816, end: 19961207

REACTIONS (1)
  - SUDDEN DEATH [None]
